FAERS Safety Report 4363313-8 (Version None)
Quarter: 2004Q2

REPORT INFORMATION
  Report Type: 
  Country: None (occurrence: None)
  Receive Date: 20040517
  Receipt Date: 20040202
  Transmission Date: 20050107
  Serious: No
  Sender: FDA-Public Use
  Company Number: S04-USA-00504-01

PATIENT
  Age: 76 Year
  Sex: Female

DRUGS (3)
  1. MEMANTINE [Suspect]
     Indication: DEMENTIA ALZHEIMER'S TYPE
     Dosage: 10 MG QD PO
     Route: 048
     Dates: start: 20031001
  2. ARICEPT [Concomitant]
  3. DEPAKOTE [Concomitant]

REACTIONS (2)
  - SOMNOLENCE [None]
  - WEIGHT INCREASED [None]
